FAERS Safety Report 8582212-9 (Version None)
Quarter: 2012Q2

REPORT INFORMATION
  Report Type: 
  Country: None (occurrence: None)
  Receive Date: 20120423
  Receipt Date: 20100107
  Transmission Date: 20120825
  Serious: Yes (Other)
  Sender: FDA-Public Use
  Company Number: PHEH2009US12412

PATIENT
  Sex: Male

DRUGS (2)
  1. ALTACE [Concomitant]
  2. EXJADE [Suspect]
     Indication: IRON OVERLOAD
     Dosage: 1500 MG DAILY, ORAL
     Route: 048
     Dates: start: 20090602, end: 20090922

REACTIONS (7)
  - GLOMERULAR FILTRATION RATE DECREASED [None]
  - RENAL IMPAIRMENT [None]
  - BLOOD UREA INCREASED [None]
  - SERUM FERRITIN INCREASED [None]
  - BLOOD CREATININE INCREASED [None]
  - BLOOD GLUCOSE INCREASED [None]
  - BLOOD CALCIUM DECREASED [None]
